FAERS Safety Report 7568553-2 (Version None)
Quarter: 2011Q2

REPORT INFORMATION
  Report Type: 
  Country: None (occurrence: None)
  Receive Date: 20110623
  Receipt Date: 20110622
  Transmission Date: 20111010
  Serious: Yes (Other)
  Sender: FDA-Public Use
  Company Number: BR-PFIZER INC-2011085073

PATIENT
  Age: 42 Year
  Sex: Male
  Weight: 76 kg

DRUGS (3)
  1. ARADOIS H [Concomitant]
     Indication: BLOOD PRESSURE INCREASED
     Dosage: 50 MG, 1X/DAY
     Dates: start: 20030101
  2. VARENICLINE TARTRATE [Suspect]
     Indication: SMOKING CESSATION THERAPY
     Dosage: UNK
     Route: 048
     Dates: start: 20110323
  3. VARENICLINE TARTRATE [Suspect]
     Dosage: 1 MG, 2X/DAY (1 MG EVERY 12 HOURS)
     Route: 048
     Dates: start: 20110101, end: 20110101

REACTIONS (3)
  - DELIRIUM [None]
  - DEPRESSION [None]
  - PANIC DISORDER [None]
